FAERS Safety Report 21737731 (Version 2)
Quarter: 2023Q1

REPORT INFORMATION
  Report Type: Spontaneous
  Country: US (occurrence: US)
  Receive Date: 20221216
  Receipt Date: 20230106
  Transmission Date: 20230418
  Serious: Yes (Death, Life-Threatening, Hospitalization, Other)
  Sender: FDA-Public Use
  Company Number: US-CELLTRION HEALTHCARE HUNGARY KFT-2022US001623

PATIENT
  Age: 50 Year
  Sex: Male

DRUGS (3)
  1. METHYLPREDNISOLONE [Suspect]
     Active Substance: METHYLPREDNISOLONE
     Indication: Morvan syndrome
     Dosage: UNK
     Route: 065
  2. PREDNISONE [Suspect]
     Active Substance: PREDNISONE
     Indication: Morvan syndrome
     Dosage: 10 MILLIGRAM, DAILY
     Route: 065
  3. RITUXIMAB [Suspect]
     Active Substance: RITUXIMAB
     Indication: Morvan syndrome
     Dosage: UNK
     Route: 065

REACTIONS (3)
  - Urosepsis [Fatal]
  - Pyelonephritis [Fatal]
  - Drug ineffective [Unknown]
